FAERS Safety Report 5577339-X (Version None)
Quarter: 2007Q4

REPORT INFORMATION
  Report Type: 
  Country: None (occurrence: None)
  Receive Date: 20071228
  Receipt Date: 20071203
  Transmission Date: 20080405
  Serious: Yes (Hospitalization)
  Sender: FDA-Public Use
  Company Number: FR-PFIZER INC-2007105906

PATIENT
  Sex: Male

DRUGS (5)
  1. TAHOR [Suspect]
     Route: 048
  2. MONO-TILDIEM [Suspect]
     Route: 048
  3. ALDALIX [Suspect]
     Route: 048
  4. OLMESARTAN MEDOXOMIL [Suspect]
     Indication: HYPERTENSION
     Dosage: DAILY DOSE:20MG-FREQ:FREQUENCY: OD
     Route: 048
  5. HYPERIUM [Suspect]
     Indication: HYPERTENSION
     Dosage: DAILY DOSE:1MG
     Route: 048

REACTIONS (4)
  - BLOOD CREATININE INCREASED [None]
  - DEHYDRATION [None]
  - HYPERKALAEMIA [None]
  - RENAL FAILURE [None]
